FAERS Safety Report 6546693-4 (Version None)
Quarter: 2010Q1

REPORT INFORMATION
  Report Type: 
  Country: None (occurrence: None)
  Receive Date: 20100122
  Receipt Date: 20100114
  Transmission Date: 20100710
  Serious: Yes (Hospitalization)
  Sender: FDA-Public Use
  Company Number: SE-ROCHE-676231

PATIENT

DRUGS (1)
  1. BEVACIZUMAB [Suspect]
     Dosage: FORM: INFUSION, DATE OF LAST DOSE: 22 DEC 2009, MAINTAINENCE PHASE
     Route: 042
     Dates: start: 20090702

REACTIONS (3)
  - ABDOMINAL PAIN [None]
  - JAUNDICE [None]
  - SUBILEUS [None]
